FAERS Safety Report 11720901 (Version 1)
Quarter: 2015Q4

REPORT INFORMATION
  Report Type: Spontaneous
  Country: US (occurrence: US)
  Receive Date: 20151110
  Receipt Date: 20151110
  Transmission Date: 20160304
  Serious: No
  Sender: FDA-Public Use
  Company Number: US-SA-2015SA134470

PATIENT
  Age: 68 Year
  Sex: Female

DRUGS (2)
  1. ALIROCUMAB PREFILLED PEN [Concomitant]
     Dates: start: 20150831
  2. PRALUENT [Suspect]
     Active Substance: ALIROCUMAB
     Indication: BLOOD CHOLESTEROL
     Route: 065
     Dates: start: 20150831

REACTIONS (5)
  - Dry mouth [Recovered/Resolved]
  - Head discomfort [Recovered/Resolved]
  - Fatigue [Recovered/Resolved]
  - Feeling abnormal [Recovered/Resolved]
  - Heart rate increased [Recovered/Resolved]

NARRATIVE: CASE EVENT DATE: 20150831
